FAERS Safety Report 4993873-5 (Version None)
Quarter: 2006Q2

REPORT INFORMATION
  Report Type: 
  Country: None (occurrence: None)
  Receive Date: 20060503
  Receipt Date: 20060427
  Transmission Date: 20061013
  Serious: Yes (Disabling, Other)
  Sender: FDA-Public Use
  Company Number: 13750

PATIENT
  Age: 81 Year
  Sex: Female

DRUGS (3)
  1. METHOTREXATE [Suspect]
     Indication: TEMPORAL ARTERITIS
     Dosage: 25 MG WEEKLY UNK
  2. FOLIC ACID [Concomitant]
  3. FREDNISONE [Concomitant]

REACTIONS (14)
  - APHAKIA [None]
  - BLINDNESS [None]
  - CHOROIDAL HAEMORRHAGE [None]
  - EYE EXCISION [None]
  - GLAUCOMA [None]
  - HYPHAEMA [None]
  - IRIS NEOVASCULARISATION [None]
  - LYMPHOMA [None]
  - MACULAR DEGENERATION [None]
  - NECROTISING RETINITIS [None]
  - OCULAR NEOPLASM [None]
  - RENAL IMPAIRMENT [None]
  - RETINAL ARTERY OCCLUSION [None]
  - VITREOUS DETACHMENT [None]
